FAERS Safety Report 15330811 (Version 1)
Quarter: 2018Q3

REPORT INFORMATION
  Report Type: Spontaneous
  Country: US (occurrence: US)
  Receive Date: 20180829
  Receipt Date: 20180829
  Transmission Date: 20181010
  Serious: Yes (Other)
  Sender: FDA-Public Use
  Company Number: US-ALLERGAN-1841532US

PATIENT
  Age: 36 Year
  Sex: Female

DRUGS (1)
  1. CRINONE [Suspect]
     Active Substance: PROGESTERONE
     Indication: INFERTILITY
     Dosage: UNK UNK, BID
     Route: 065
     Dates: start: 20180718, end: 20180818

REACTIONS (4)
  - Drug ineffective [Unknown]
  - Product quality issue [Unknown]
  - Abortion spontaneous [Unknown]
  - Pregnancy [Unknown]

NARRATIVE: CASE EVENT DATE: 20180718
